FAERS Safety Report 6542274-7 (Version None)
Quarter: 2010Q1

REPORT INFORMATION
  Report Type: 
  Country: None (occurrence: None)
  Receive Date: 20100114
  Receipt Date: 20100114
  Transmission Date: 20100710
  Serious: Yes (Hospitalization)
  Sender: FDA-Public Use
  Company Number: None

PATIENT
  Sex: Male
  Weight: 87.5442 kg

DRUGS (8)
  1. IXABEPILONE (GA6181ZB) [Suspect]
     Indication: PANCREATIC CARCINOMA
     Dates: start: 20090415, end: 20090527
  2. SUNITINIB [Suspect]
     Dosage: 37.5 MG
     Dates: start: 20090415, end: 20090527
  3. NADOLOL [Concomitant]
  4. NEXIUM [Concomitant]
  5. DEUONEB [Concomitant]
  6. PERCOCET [Concomitant]
  7. ZOFRAN [Concomitant]
  8. AMBIEN [Concomitant]

REACTIONS (2)
  - GASTROINTESTINAL HAEMORRHAGE [None]
  - METASTASES TO LUNG [None]
